FAERS Safety Report 9906626 (Version 1)
Quarter: 2014Q1

REPORT INFORMATION
  Report Type: Spontaneous
  Country: US (occurrence: US)
  Receive Date: 20140218
  Receipt Date: 20140218
  Transmission Date: 20141002
  Serious: No
  Sender: FDA-Public Use
  Company Number: US-B.I. PHARMACEUTICALS,INC./RIDGEFIELD-2014-BI-06573BP

PATIENT
  Age: 85 Year
  Sex: Male
  Weight: 77 kg

DRUGS (4)
  1. PRADAXA [Suspect]
     Indication: ATRIAL FIBRILLATION
     Dosage: 300 MG
     Route: 048
     Dates: start: 201310
  2. OMEPRAZOLE [Concomitant]
     Indication: GASTROOESOPHAGEAL REFLUX DISEASE
     Dosage: 40 MG
     Route: 048
  3. RAMIPRIL [Concomitant]
     Indication: CARDIOMYOPATHY
     Dosage: 5 MG
     Route: 048
  4. METOPROLOL [Concomitant]
     Dosage: 100 MG
     Route: 048

REACTIONS (1)
  - Chest discomfort [Not Recovered/Not Resolved]
